FAERS Safety Report 8200594-4 (Version None)
Quarter: 2012Q1

REPORT INFORMATION
  Report Type: 
  Country: None (occurrence: None)
  Receive Date: 20120312
  Receipt Date: 20120305
  Transmission Date: 20120608
  Serious: Yes (Death, Life-Threatening, Hospitalization)
  Sender: FDA-Public Use
  Company Number: JP-BRISTOL-MYERS SQUIBB COMPANY-15514144

PATIENT
  Age: 71 Year
  Sex: Female
  Weight: 53 kg

DRUGS (3)
  1. RABEPRAZOLE SODIUM [Concomitant]
     Indication: PROPHYLAXIS
     Dosage: TABS
     Route: 048
  2. SPRYCEL [Suspect]
     Indication: CHRONIC MYELOID LEUKAEMIA
     Dosage: DURATION OF THERAPY:4D 140MG:07JAN11-11JAN11(5D)
     Route: 048
     Dates: start: 20110107, end: 20110111
  3. ALLOPURINOL [Concomitant]
     Indication: PROPHYLAXIS
     Dosage: TAB
     Route: 048
     Dates: start: 20110107, end: 20110111

REACTIONS (3)
  - NEOPLASM MALIGNANT [None]
  - C-REACTIVE PROTEIN INCREASED [None]
  - INTERSTITIAL LUNG DISEASE [None]
